FAERS Safety Report 5244841-X (Version None)
Quarter: 2007Q1

REPORT INFORMATION
  Report Type: 
  Country: None (occurrence: None)
  Receive Date: 20070216
  Receipt Date: 20070129
  Transmission Date: 20070707
  Serious: Yes (Life-Threatening)
  Sender: FDA-Public Use
  Company Number: S07-UKI-00624-01

PATIENT
  Age: 84 Year
  Sex: Male

DRUGS (4)
  1. EBIXA (MEMANTINE) [Suspect]
     Indication: DEMENTIA ALZHEIMER'S TYPE
     Dosage: 10 MG QD; PO
     Route: 048
     Dates: start: 20060201, end: 20060321
  2. ASPIRIN [Concomitant]
  3. FRUSEMIDE [Concomitant]
  4. PAROXETINE HCL [Concomitant]

REACTIONS (3)
  - TORSADE DE POINTES [None]
  - VENTRICULAR ASYSTOLE [None]
  - VENTRICULAR TACHYARRHYTHMIA [None]
